FAERS Safety Report 9908867 (Version 1)
Quarter: 2014Q1

REPORT INFORMATION
  Report Type: Spontaneous
  Country: US (occurrence: None)
  Receive Date: 20140212
  Receipt Date: 20140212
  Transmission Date: 20141002
  Serious: No
  Sender: FDA-Public Use
  Company Number: None

PATIENT
  Sex: Female

DRUGS (1)
  1. DR. MIRACLE^S 2 IN 1 TINGLING SHAMPOO AND CONDITIONER [Suspect]

REACTIONS (7)
  - Accidental exposure to product [None]
  - Eye irritation [None]
  - Photosensitivity reaction [None]
  - Corneal irritation [None]
  - Injury corneal [None]
  - Product quality issue [None]
  - Product contamination microbial [None]
